FAERS Safety Report 17321753 (Version 1)
Quarter: 2020Q1

REPORT INFORMATION
  Report Type: Other
  Country: US (occurrence: US)
  Receive Date: 20200127
  Receipt Date: 20200127
  Transmission Date: 20200409
  Serious: No
  Sender: FDA-Public Use
  Company Number: US-ACORDA-ACO_159762_2019

PATIENT
  Age: 25 Year
  Sex: Female
  Weight: 91.16 kg

DRUGS (17)
  1. AMPYRA [Suspect]
     Active Substance: DALFAMPRIDINE
     Indication: GAIT DISTURBANCE
     Dosage: 10 MILLIGRAM, BID
     Route: 048
     Dates: start: 20120615
  2. TECFIDERA [Suspect]
     Active Substance: DIMETHYL FUMARATE
     Dosage: 240 MILLIGRAM, BID
     Dates: start: 201906
  3. AVONEX [Suspect]
     Active Substance: INTERFERON BETA-1A
     Indication: PRODUCT USED FOR UNKNOWN INDICATION
     Dosage: 30 MICROGRAM, WEEKLY
     Route: 030
     Dates: start: 20120221, end: 20121031
  4. ADDERALL [Concomitant]
     Active Substance: AMPHETAMINE ASPARTATE\AMPHETAMINE SULFATE\DEXTROAMPHETAMINE SACCHARATE\DEXTROAMPHETAMINE SULFATE
     Indication: PRODUCT USED FOR UNKNOWN INDICATION
     Dosage: 10 TO 20 MG, QD
     Route: 048
  5. TECFIDERA [Suspect]
     Active Substance: DIMETHYL FUMARATE
     Indication: MULTIPLE SCLEROSIS
     Dosage: 240 MILLIGRAM, BID
     Route: 048
     Dates: start: 20140930
  6. DETROL LA [Concomitant]
     Active Substance: TOLTERODINE TARTRATE
     Indication: PRODUCT USED FOR UNKNOWN INDICATION
     Dosage: 4 MILLIGRAM, QD
     Route: 065
  7. OMEPRAZOLE. [Concomitant]
     Active Substance: OMEPRAZOLE
     Indication: PRODUCT USED FOR UNKNOWN INDICATION
     Dosage: 1 DOSAGE FORM, QD
     Route: 048
  8. VITAMIN B COMPLEX [Concomitant]
     Active Substance: CYANOCOBALAMIN\DEXPANTHENOL\NIACINAMIDE\PYRIDOXINE HYDROCHLORIDE\RIBOFLAVIN 5^-PHOSPHATE SODIUM\THIAMINE HYDROCHLORIDE\VITAMIN B COMPLEX
     Indication: PRODUCT USED FOR UNKNOWN INDICATION
     Dosage: UNK
     Route: 065
  9. NAPROXEN. [Concomitant]
     Active Substance: NAPROXEN
     Indication: PRODUCT USED FOR UNKNOWN INDICATION
     Dosage: 500 MILLIGRAM, BID PRN
     Route: 048
  10. AUGMENTIN [Concomitant]
     Active Substance: AMOXICILLIN\CLAVULANATE POTASSIUM
     Indication: PRODUCT USED FOR UNKNOWN INDICATION
     Dosage: UNK
     Route: 065
  11. LOW-OGESTREL [Concomitant]
     Active Substance: ETHINYL ESTRADIOL\NORGESTREL
     Indication: PRODUCT USED FOR UNKNOWN INDICATION
     Dosage: 1 DOSAGE FORM, QD
     Route: 048
  12. NUVIGIL [Concomitant]
     Active Substance: ARMODAFINIL
     Indication: PRODUCT USED FOR UNKNOWN INDICATION
     Dosage: UNK
     Route: 065
  13. VITAMIN D [Concomitant]
     Active Substance: VITAMIN D NOS
     Indication: PRODUCT USED FOR UNKNOWN INDICATION
     Dosage: 50000 INTERNATIONAL UNIT, WEEKLY
     Route: 048
  14. PROMETHAZINE HCL [Concomitant]
     Active Substance: PROMETHAZINE HYDROCHLORIDE
     Indication: NAUSEA
     Dosage: 25 MILLIGRAM, Q 6 HRS
     Route: 048
  15. CYANOCOBALAMIN. [Concomitant]
     Active Substance: CYANOCOBALAMIN
     Indication: PRODUCT USED FOR UNKNOWN INDICATION
     Dosage: 1 MILLILITER ONCE WEEKLY FOR 4 WEEKS THEN ONCE MONTHLY
     Route: 030
  16. VITAMIN B12 [Concomitant]
     Active Substance: CYANOCOBALAMIN
     Indication: PRODUCT USED FOR UNKNOWN INDICATION
     Dosage: UNK
     Route: 065
  17. PRENATAL [Concomitant]
     Active Substance: VITAMINS
     Indication: PRODUCT USED FOR UNKNOWN INDICATION
     Dosage: 1 DOSAGE FORM, QD
     Route: 065

REACTIONS (53)
  - Hypoaesthesia [Recovered/Resolved]
  - Cerebellar ataxia [Unknown]
  - Relapsing-remitting multiple sclerosis [Unknown]
  - Diplopia [Recovering/Resolving]
  - Stress [Unknown]
  - Photosensitivity reaction [Unknown]
  - Diarrhoea [Not Recovered/Not Resolved]
  - Musculoskeletal chest pain [Unknown]
  - Asthenia [Unknown]
  - Nausea [Unknown]
  - Temperature intolerance [Unknown]
  - Polyuria [Unknown]
  - Flushing [Unknown]
  - Cyst rupture [Unknown]
  - Dysarthria [Unknown]
  - Memory impairment [Unknown]
  - Urinary tract infection [Unknown]
  - Hypertonic bladder [Unknown]
  - Eye pain [Recovered/Resolved]
  - Functional gastrointestinal disorder [Unknown]
  - Pain in extremity [Unknown]
  - Skin discolouration [Unknown]
  - Malaise [Unknown]
  - Balance disorder [Unknown]
  - Vision blurred [Unknown]
  - Sexual dysfunction [Unknown]
  - Magnetic resonance imaging brain abnormal [Unknown]
  - Muscular weakness [Unknown]
  - Arthralgia [Unknown]
  - Sinusitis [Unknown]
  - Gastritis [Unknown]
  - Cognitive disorder [Unknown]
  - Disturbance in attention [Unknown]
  - Pain [Unknown]
  - Dysphagia [Unknown]
  - Dyspepsia [Unknown]
  - Fatigue [Unknown]
  - Ophthalmoplegia [Unknown]
  - Urinary incontinence [Unknown]
  - Ovarian cyst [Unknown]
  - Muscle spasms [Unknown]
  - Dyspnoea [Unknown]
  - Neuralgia [Unknown]
  - Motion sickness [Unknown]
  - Vitamin D deficiency [Unknown]
  - Oropharyngeal pain [Unknown]
  - Abdominal pain upper [Unknown]
  - Bladder dysfunction [Unknown]
  - Musculoskeletal stiffness [Unknown]
  - Contusion [Unknown]
  - Headache [Unknown]
  - Dizziness [Unknown]
  - Back pain [Unknown]

NARRATIVE: CASE EVENT DATE: 201207
